FAERS Safety Report 18533558 (Version 4)
Quarter: 2021Q1

REPORT INFORMATION
  Report Type: Spontaneous
  Country: JP (occurrence: JP)
  Receive Date: 20201123
  Receipt Date: 20210119
  Transmission Date: 20210419
  Serious: Yes (Life-Threatening, Other)
  Sender: FDA-Public Use
  Company Number: JP-ELI_LILLY_AND_COMPANY-JP202004008230

PATIENT
  Age: 17 Year
  Sex: Female
  Weight: 67 kg

DRUGS (16)
  1. UPTRAVI [Suspect]
     Active Substance: SELEXIPAG
     Dosage: 0.3 MG, BID
     Route: 048
     Dates: start: 20181215, end: 20190705
  2. UPTRAVI [Suspect]
     Active Substance: SELEXIPAG
     Dosage: 1 MG, BID
     Route: 065
  3. UPTRAVI [Suspect]
     Active Substance: SELEXIPAG
     Dosage: 1 MG, BID
     Route: 065
  4. EBASTINE [Concomitant]
     Active Substance: EBASTINE
     Indication: RHINITIS ALLERGIC
     Dosage: 10 MG, DAILY
     Route: 065
  5. ADCIRCA [Suspect]
     Active Substance: TADALAFIL
     Indication: PULMONARY ARTERIAL HYPERTENSION
     Dosage: 40 MG, DAILY
     Route: 065
  6. TARIVID [OFLOXACIN HYDROCHLORIDE] [Concomitant]
     Indication: OTITIS MEDIA CHRONIC
     Dosage: 2 GTT, DAILY
     Route: 065
  7. ALESION [Concomitant]
     Active Substance: EPINASTINE HYDROCHLORIDE
     Indication: CONJUNCTIVITIS ALLERGIC
     Dosage: 2 GTT, DAILY
     Route: 065
  8. UPTRAVI [Suspect]
     Active Substance: SELEXIPAG
     Dosage: 0.4 MG, BID
     Route: 048
     Dates: start: 20190706, end: 20191220
  9. UPTRAVI [Suspect]
     Active Substance: SELEXIPAG
     Dosage: 0.6 MG, BID
     Route: 048
     Dates: start: 20191221
  10. OPSUMIT [Concomitant]
     Active Substance: MACITENTAN
     Indication: PULMONARY ARTERIAL HYPERTENSION
     Dosage: 10 MG, DAILY
     Route: 065
  11. UPTRAVI [Suspect]
     Active Substance: SELEXIPAG
     Indication: PULMONARY ARTERIAL HYPERTENSION
     Dosage: 0.2 MG, BID
     Route: 048
     Dates: start: 20180126, end: 20180413
  12. UPTRAVI [Suspect]
     Active Substance: SELEXIPAG
     Dosage: 2 MG, DAILY
     Route: 065
  13. UPTRAVI [Suspect]
     Active Substance: SELEXIPAG
     Dosage: 0.4 MG, BID
     Route: 048
     Dates: start: 20180414, end: 20180517
  14. UPTRAVI [Suspect]
     Active Substance: SELEXIPAG
     Dosage: 0.2 MG, BID
     Route: 048
     Dates: start: 20180518, end: 20181214
  15. UPTRAVI [Suspect]
     Active Substance: SELEXIPAG
     Dosage: 0.8 MG, BID
     Route: 065
  16. UPTRAVI [Suspect]
     Active Substance: SELEXIPAG
     Dosage: 0.8 MG, BID
     Route: 065

REACTIONS (5)
  - Diabetes insipidus [Recovering/Resolving]
  - Rhinitis allergic [Recovering/Resolving]
  - Syncope [Recovered/Resolved]
  - Syncope [Recovered/Resolved]
  - Rhinorrhoea [Recovering/Resolving]

NARRATIVE: CASE EVENT DATE: 20180426
